FAERS Safety Report 18158546 (Version 4)
Quarter: 2024Q1

REPORT INFORMATION
  Report Type: Spontaneous
  Country: US (occurrence: US)
  Receive Date: 20200817
  Receipt Date: 20240215
  Transmission Date: 20240410
  Serious: Yes (Other)
  Sender: FDA-Public Use
  Company Number: US-GILEAD-2020-0489318

PATIENT
  Age: 40 Year
  Sex: Male
  Weight: 74.83 kg

DRUGS (14)
  1. TRUVADA [Suspect]
     Active Substance: EMTRICITABINE\TENOFOVIR DISOPROXIL FUMARATE
     Indication: HIV infection
     Dosage: UNK
     Route: 048
     Dates: start: 2010, end: 2013
  2. TRUVADA [Suspect]
     Active Substance: EMTRICITABINE\TENOFOVIR DISOPROXIL FUMARATE
     Dosage: UNK
     Route: 048
     Dates: start: 200907, end: 201201
  3. STRIBILD [Suspect]
     Active Substance: COBICISTAT\ELVITEGRAVIR\EMTRICITABINE\TENOFOVIR DISOPROXIL FUMARATE
     Indication: HIV infection
     Dosage: UNK
     Route: 048
     Dates: start: 201309, end: 201608
  4. ATRIPLA [Suspect]
     Active Substance: EFAVIRENZ\EMTRICITABINE\TENOFOVIR DISOPROXIL FUMARATE
     Indication: HIV infection
     Dosage: UNK
     Route: 065
     Dates: start: 201101, end: 201103
  5. GENVOYA [Concomitant]
     Active Substance: COBICISTAT\ELVITEGRAVIR\EMTRICITABINE\TENOFOVIR ALAFENAMIDE FUMARATE
     Indication: HIV infection
     Dosage: UNK
     Route: 048
     Dates: start: 2019
  6. GENVOYA [Concomitant]
     Active Substance: COBICISTAT\ELVITEGRAVIR\EMTRICITABINE\TENOFOVIR ALAFENAMIDE FUMARATE
     Dosage: UNK
     Route: 048
     Dates: start: 2016
  7. EPIVIR [Concomitant]
     Active Substance: LAMIVUDINE
     Indication: HIV infection
     Route: 048
  8. SUSTIVA [Concomitant]
     Active Substance: EFAVIRENZ
     Indication: Product used for unknown indication
     Route: 048
  9. ALBUTEROL SULFATE [Concomitant]
     Active Substance: ALBUTEROL SULFATE
     Indication: Bronchitis
     Dosage: UNK
     Route: 048
     Dates: start: 2018
  10. LACTASE [Concomitant]
     Active Substance: LACTASE
     Indication: Lactose intolerance
     Dosage: UNK
     Route: 048
  11. VITAMINS [Concomitant]
     Active Substance: VITAMINS
     Indication: Supplementation therapy
     Dosage: UNK
     Route: 048
     Dates: start: 2020
  12. TESTOSTERONE [Concomitant]
     Active Substance: TESTOSTERONE
     Indication: Supplementation therapy
     Dosage: UNK
     Route: 048
     Dates: start: 2002
  13. REYATAZ [Concomitant]
     Active Substance: ATAZANAVIR SULFATE
     Indication: HIV infection
     Dosage: UNK
     Dates: start: 2009, end: 2013
  14. NORVIR [Concomitant]
     Active Substance: RITONAVIR
     Indication: HIV infection
     Dosage: UNK
     Dates: start: 2009, end: 2013

REACTIONS (9)
  - Chronic kidney disease [Not Recovered/Not Resolved]
  - Renal failure [Not Recovered/Not Resolved]
  - Emotional distress [Unknown]
  - Anhedonia [Unknown]
  - Anxiety [Unknown]
  - Depression [Recovered/Resolved]
  - Pain [Unknown]
  - Vitamin D deficiency [Not Recovered/Not Resolved]
  - Loss of personal independence in daily activities [Unknown]

NARRATIVE: CASE EVENT DATE: 20140301
